FAERS Safety Report 8882954 (Version 1)
Quarter: 2012Q4

REPORT INFORMATION
  Report Type: 
  Country: US (occurrence: US)
  Receive Date: 20121103
  Receipt Date: 20121103
  Transmission Date: 20130627
  Serious: No
  Sender: FDA-Public Use
  Company Number: US-VERTEX PHARMACEUTICAL INC.-2012-023910

PATIENT
  Age: 70 None
  Sex: Female
  Weight: 72 kg

DRUGS (6)
  1. INCIVEK [Suspect]
     Indication: HEPATITIS C
     Dosage: 750 mg, tid
     Route: 048
     Dates: start: 20121005
  2. RIBAVIRIN [Suspect]
     Indication: HEPATITIS C
     Dosage: 5 tab, qd
     Dates: start: 20121005, end: 20121019
  3. RIBAVIRIN [Suspect]
     Dosage: 4 tabs, qd
     Dates: start: 20121020, end: 20121026
  4. RIBAVIRIN [Suspect]
     Dosage: 2 tabs, qd
     Dates: start: 20121028
  5. PEGASYS [Suspect]
     Indication: HEPATITIS C
     Dosage: UNK
     Dates: start: 20121005
  6. PROCRIT                            /00909301/ [Concomitant]
     Dosage: UNK
     Dates: start: 20121026

REACTIONS (4)
  - Tongue discolouration [Not Recovered/Not Resolved]
  - Asthenia [Not Recovered/Not Resolved]
  - Fatigue [Not Recovered/Not Resolved]
  - Anaemia [Unknown]
